FAERS Safety Report 9243513 (Version 1)
Quarter: 2013Q1

REPORT INFORMATION
  Report Type: Spontaneous
  Country: US (occurrence: None)
  Receive Date: 20121123
  Receipt Date: 20121123
  Transmission Date: 20140127
  Serious: Yes (Hospitalization)
  Sender: FDA-Public Use
  Company Number: 359770

PATIENT
  Age: 61 Year
  Sex: Female
  Weight: 83.4 kg

DRUGS (7)
  1. VICTOZA [Suspect]
     Indication: TYPE 2 DIABETES MELLITUS
     Route: 058
     Dates: end: 201209
  2. GLIPIZIDE (GLIPIZIDE) [Concomitant]
  3. PERCOCET/00446701/(PERCOCET, OXYCODONE HYDROCHLORIDE, OXYCODONE TEREPTHALATE) [Concomitant]
  4. SIMVASTATIN (SIMVASTATIN) [Concomitant]
  5. ECOTRIN (ACETYLSALICYLIC ACID) [Concomitant]
  6. LORATADINE (LORATIDINE) [Concomitant]
  7. TRICOR [Concomitant]

REACTIONS (1)
  - Pancreatitis [None]
